FAERS Safety Report 24590394 (Version 1)
Quarter: 2024Q4

REPORT INFORMATION
  Report Type: Spontaneous
  Country: US (occurrence: None)
  Receive Date: 20241107
  Receipt Date: 20241107
  Transmission Date: 20250115
  Serious: No
  Sender: Public
  Company Number: None

PATIENT
  Age: 68 Year
  Sex: Female

DRUGS (1)
  1. PROLIA [Suspect]
     Active Substance: DENOSUMAB
     Indication: Osteoporosis
     Dosage: SUBCUTANEOUS
     Route: 058
     Dates: start: 20230906, end: 20241104

REACTIONS (3)
  - Rash vesicular [None]
  - Rash [None]
  - Rash [None]

NARRATIVE: CASE EVENT DATE: 20241016
